FAERS Safety Report 8967011 (Version 1)
Quarter: 2012Q4

REPORT INFORMATION
  Report Type: 
  Country: US (occurrence: US)
  Receive Date: 20121214
  Receipt Date: 20121214
  Transmission Date: 20130627
  Serious: Yes (Hospitalization, Other)
  Sender: FDA-Public Use
  Company Number: US-PFIZER INC-2012315100

PATIENT
  Age: 54 Year
  Sex: Male
  Weight: 83.9 kg

DRUGS (2)
  1. GABAPENTIN [Suspect]
     Indication: PAIN IN FOOT
     Dosage: 300 mg, 3x/day
     Dates: start: 201210, end: 201210
  2. LISINOPRIL W/HYDROCHLOROTHIAZIDE [Concomitant]
     Indication: BLOOD PRESSURE HIGH
     Dosage: 12.5/20 mg, UNK

REACTIONS (4)
  - Intervertebral disc protrusion [Unknown]
  - Intervertebral disc disorder [Unknown]
  - Hypoaesthesia [Unknown]
  - Drug ineffective [Unknown]
